FAERS Safety Report 23982192 (Version 1)
Quarter: 2024Q2

REPORT INFORMATION
  Report Type: Spontaneous
  Country: US (occurrence: None)
  Receive Date: 20240616
  Receipt Date: 20240616
  Transmission Date: 20240716
  Serious: No
  Sender: FDA-Public Use
  Company Number: None

PATIENT
  Age: 41 Year
  Sex: Female
  Weight: 56.25 kg

DRUGS (13)
  1. WAKIX [Suspect]
     Active Substance: PITOLISANT HYDROCHLORIDE
     Indication: Narcolepsy
     Dosage: 2 TABLETS ORAL?
     Route: 048
     Dates: start: 20240128, end: 20240501
  2. PULMICORT TURBUHALER [Concomitant]
     Active Substance: BUDESONIDE
  3. ALDDERALL [Concomitant]
  4. LYRICA [Concomitant]
     Active Substance: PREGABALIN
  5. NEBIVOLOL [Concomitant]
     Active Substance: NEBIVOLOL
  6. XOLAIR [Concomitant]
     Active Substance: OMALIZUMAB
  7. EPIPEN [Concomitant]
     Active Substance: EPINEPHRINE
  8. SINGULAIR [Concomitant]
     Active Substance: MONTELUKAST SODIUM
  9. BACLOFEN [Concomitant]
     Active Substance: BACLOFEN
  10. ALBUTERO [Concomitant]
  11. FLONASE [Concomitant]
  12. ALLEGRA [Concomitant]
     Active Substance: FEXOFENADINE HYDROCHLORIDE
  13. EXCEDRIN [Concomitant]
     Active Substance: ACETAMINOPHEN\ASPIRIN\CAFFEINE

REACTIONS (6)
  - Anxiety [None]
  - Apathy [None]
  - Insomnia [None]
  - Suicidal ideation [None]
  - Therapy interrupted [None]
  - Product dispensing issue [None]

NARRATIVE: CASE EVENT DATE: 20240501
